FAERS Safety Report 9669660 (Version 1)
Quarter: 2013Q4

REPORT INFORMATION
  Report Type: Spontaneous
  Country: IE (occurrence: None)
  Receive Date: 20131101
  Receipt Date: 20131101
  Transmission Date: 20140711
  Serious: Yes (Other)
  Sender: FDA-Public Use
  Company Number: IE-20130011

PATIENT
  Age: 67 Year
  Sex: Female

DRUGS (1)
  1. DOTAREM [Suspect]
     Indication: NUCLEAR MAGNETIC RESONANCE IMAGING
     Route: 042
     Dates: start: 20131007, end: 20131007

REACTIONS (2)
  - Chest discomfort [None]
  - Urticaria [None]
